FAERS Safety Report 10236682 (Version 2)
Quarter: 2014Q2

REPORT INFORMATION
  Report Type: Spontaneous
  Country: US (occurrence: US)
  Receive Date: 20140613
  Receipt Date: 20140613
  Transmission Date: 20141212
  Serious: Yes (Hospitalization)
  Sender: FDA-Public Use
  Company Number: US-GLAXOSMITHKLINE-A0779954A

PATIENT
  Sex: Male
  Weight: 79.5 kg

DRUGS (8)
  1. AVANDIA [Suspect]
     Indication: DIABETES MELLITUS
     Dosage: 4MG TWICE PER DAY
     Route: 048
     Dates: start: 200511, end: 200707
  2. AVANDAMET [Suspect]
     Indication: DIABETES MELLITUS
     Route: 048
     Dates: start: 20051104, end: 20070411
  3. PRINIVIL [Concomitant]
  4. GLIPIZIDE [Concomitant]
  5. METFORMIN [Concomitant]
  6. FISH OIL [Concomitant]
  7. NEXIUM [Concomitant]
  8. MULTIVITAMIN [Concomitant]

REACTIONS (6)
  - Myocardial infarction [Unknown]
  - Myocardial ischaemia [Unknown]
  - Ventricular tachycardia [Unknown]
  - Supraventricular tachycardia [Unknown]
  - Cardiomyopathy [Unknown]
  - Coronary artery disease [Unknown]
